FAERS Safety Report 13024202 (Version 1)
Quarter: 2016Q4

REPORT INFORMATION
  Report Type: Spontaneous
  Country: US (occurrence: US)
  Receive Date: 20161213
  Receipt Date: 20161213
  Transmission Date: 20170207
  Serious: Yes (Other)
  Sender: FDA-Public Use
  Company Number: US-NOVOPROD-521975

PATIENT
  Sex: Male

DRUGS (1)
  1. TRESIBA [Suspect]
     Active Substance: INSULIN DEGLUDEC
     Indication: DIABETES MELLITUS
     Dosage: UNKNOWN
     Route: 058

REACTIONS (6)
  - Thirst [Unknown]
  - Blood glucose increased [Unknown]
  - Cancer surgery [Unknown]
  - Hunger [Unknown]
  - Weight increased [Unknown]
  - Intentional product misuse [Unknown]
